FAERS Safety Report 8366781-X (Version None)
Quarter: 2012Q2

REPORT INFORMATION
  Report Type: 
  Country: None (occurrence: None)
  Receive Date: 20120516
  Receipt Date: 20120516
  Transmission Date: 20120825
  Serious: Yes (Other)
  Sender: FDA-Public Use
  Company Number: None

PATIENT
  Age: 8 Year
  Sex: Male
  Weight: 35 kg

DRUGS (9)
  1. VANCOMYCIN [Suspect]
     Indication: NEUTROPENIA
     Dosage: 500 MG IV Q8H
     Route: 042
     Dates: start: 20120222, end: 20120301
  2. VANCOMYCIN [Suspect]
     Indication: PYREXIA
     Dosage: 500 MG IV Q8H
     Route: 042
     Dates: start: 20120222, end: 20120301
  3. ACYCLOVIR [Concomitant]
  4. M.V.I. [Concomitant]
  5. CIPROFLOXACIN [Concomitant]
  6. URSODIOL [Concomitant]
  7. PREDNISONE [Concomitant]
  8. PANTOPRAZOLE [Concomitant]
  9. CEFTAZIDIME [Concomitant]

REACTIONS (1)
  - RED MAN SYNDROME [None]
